FAERS Safety Report 8090422-2 (Version None)
Quarter: 2012Q1

REPORT INFORMATION
  Report Type: 
  Country: None (occurrence: None)
  Receive Date: 20120129
  Receipt Date: 20111201
  Transmission Date: 20120608
  Serious: No
  Sender: FDA-Public Use
  Company Number: US-ABBOTT-11P-163-0879793-00

PATIENT
  Sex: Female
  Weight: 68.1 kg

DRUGS (3)
  1. PREDNISONE TAB [Concomitant]
     Indication: BEHCET'S SYNDROME
  2. COLCRYS [Concomitant]
     Indication: BEHCET'S SYNDROME
     Dosage: DOSE UNKNOWN
  3. HUMIRA [Suspect]
     Indication: BEHCET'S SYNDROME
     Route: 058
     Dates: start: 20110801

REACTIONS (1)
  - OFF LABEL USE [None]
